FAERS Safety Report 23693330 (Version 4)
Quarter: 2025Q1

REPORT INFORMATION
  Report Type: Spontaneous
  Country: US (occurrence: US)
  Receive Date: 20240401
  Receipt Date: 20250123
  Transmission Date: 20250408
  Serious: Yes (Other)
  Sender: PFIZER
  Company Number: US-PFIZER INC-PV202400041778

PATIENT
  Age: 82 Year
  Sex: Male
  Weight: 55 kg

DRUGS (34)
  1. INLYTA [Suspect]
     Active Substance: AXITINIB
     Indication: Renal cell carcinoma
     Dosage: 5 MG, 2X/DAY
     Route: 048
     Dates: start: 20231027, end: 20231114
  2. INLYTA [Suspect]
     Active Substance: AXITINIB
     Dosage: 3 MG, 2X/DAY
     Route: 048
     Dates: start: 20231114, end: 20240229
  3. INLYTA [Suspect]
     Active Substance: AXITINIB
     Dosage: 2 MG, 2X/DAY
     Route: 048
     Dates: start: 2024
  4. KEYTRUDA [Suspect]
     Active Substance: PEMBROLIZUMAB
     Route: 042
     Dates: start: 20231026
  5. TYLENOL [Concomitant]
     Active Substance: ACETAMINOPHEN
     Indication: Pain
     Route: 048
  6. PROVENTIL [Concomitant]
     Active Substance: ALBUTEROL
     Indication: Dyspnoea
     Route: 055
  7. ALBUTEROL [Concomitant]
     Active Substance: ALBUTEROL
     Indication: Wheezing
     Route: 055
  8. ALBUTEROL [Concomitant]
     Active Substance: ALBUTEROL
     Indication: Dyspnoea
  9. ZYLOPRIM [Concomitant]
     Active Substance: ALLOPURINOL
     Dosage: TAKE HALF (ONE-HALF) TABLET BY MOUTH ONCE DAILY
     Route: 048
  10. ASPIRIN [Concomitant]
     Active Substance: ASPIRIN
     Dosage: CHEW 1 TABLET (81 MG TOTAL) BY MOUTH DAILY
     Route: 048
  11. LIPITOR [Concomitant]
     Active Substance: ATORVASTATIN CALCIUM
     Dosage: TAKE 2 TABLETS BY MOUTH ONCE DAILY
     Route: 048
  12. PERIDEX [CHLORHEXIDINE GLUCONATE] [Concomitant]
     Dosage: SWISH AND SPIT 15 ML 3 (THREE) TIMES A DAY WITH MEALS
  13. CHOLECALCIFEROL [Concomitant]
     Active Substance: CHOLECALCIFEROL
     Dosage: TAKE 1000 UNITS BY MOUTH DAILY
     Route: 048
  14. ADOXA [DOXYCYCLINE] [Concomitant]
     Dosage: TAKE 1 TABLET (100 MG TOTAL) BY MOUTH 2 (TWO) TIMES
     Route: 048
  15. ENTRESTO [Concomitant]
     Active Substance: SACUBITRIL\VALSARTAN
     Dosage: TAKE 1 TABLET BY MOUTH TWICE DAILY
     Route: 048
  16. LASIX [Concomitant]
     Active Substance: FUROSEMIDE
     Dosage: TAKE 1 TABLET BY MOUTH ONCE DAILY
     Route: 048
  17. NEURONTIN [Concomitant]
     Active Substance: GABAPENTIN
     Dosage: TAKE 1 CAPSULE (300 MG TOTAL) BY MOUTH EVERY NIGHT AT BEDTIME.
     Route: 048
  18. SYNTHROID [Concomitant]
     Active Substance: LEVOTHYROXINE SODIUM
     Dosage: TAKE 0.5 TABLETS (12.5 MCG TOTAL) BY MOUTH EVERY MORNING ON AN EMPTY STOMACH
     Route: 048
  19. CLARITIN [Concomitant]
     Active Substance: LORATADINE
     Route: 048
  20. TOPROL XL [Concomitant]
     Active Substance: METOPROLOL SUCCINATE
     Dosage: TAKE 1 TABLET BY MOUTH TWICE DAILY
     Route: 048
  21. MYCOSTATIN BABY [Concomitant]
     Dosage: APPLY TOPICALLY 4 (FOUR) TIMES A DAY
     Route: 061
  22. PROTONIX [Concomitant]
     Active Substance: PANTOPRAZOLE SODIUM
     Dosage: TAKE 1 TABLET (40MG TOTAL) BY MOUTH DAILY
     Route: 048
  23. MIRALAX [Concomitant]
     Active Substance: POLYETHYLENE GLYCOL 3350
     Route: 048
  24. KAY CIEL [Concomitant]
     Active Substance: POTASSIUM CHLORIDE
     Dosage: TAKE 15 ML BY MOUTH ONCE DAILY
     Route: 048
  25. PREDNISOLONE [Concomitant]
     Active Substance: PREDNISOLONE
     Dosage: TAKE 1 TABLET (20 MG TOTAL) BY MOUTH DAILY
     Route: 048
  26. COMPAZINE [Concomitant]
     Active Substance: PROCHLORPERAZINE MALEATE
     Route: 048
  27. SENNA S [Concomitant]
     Active Substance: DOCUSATE SODIUM\SENNOSIDES
     Dosage: TAKE 1 TABLET BY MOUTH DAILY
     Route: 048
  28. ALDACTONE [Concomitant]
     Active Substance: SPIRONOLACTONE
     Dosage: TAKE 0.5 TABLET (12.5 MG TOTAL) BY MOUTH DAILY
     Route: 048
  29. FLOMAX [Concomitant]
     Active Substance: TAMSULOSIN HYDROCHLORIDE
     Dosage: TAKE 1 CAPSULE BY MOUTH ONCE DAILY
     Route: 048
  30. SWISS KRISS [Concomitant]
  31. VITAMIN E [Concomitant]
     Active Substance: .ALPHA.-TOCOPHEROL
     Dosage: TAKE 4 CAPSULES (400 UNITS TOTAL) BY MOUTH DAILY
     Route: 048
  32. ZYRTEC [Concomitant]
     Active Substance: CETIRIZINE HYDROCHLORIDE
     Route: 048
  33. PLAVIX [Concomitant]
     Active Substance: CLOPIDOGREL BISULFATE
     Dosage: TAKE 1 TABLET (75 MG TOTAL) BY MOUTH DAILY
     Route: 048
  34. CETIRIZINE HYDROCHLORIDE [Concomitant]
     Active Substance: CETIRIZINE HYDROCHLORIDE
     Dosage: TAKE 1 TABLET (10 MG TOTAL) BY MOUTH DAILY
     Route: 048

REACTIONS (4)
  - Cardiac dysfunction [Recovered/Resolved]
  - Diarrhoea [Recovered/Resolved]
  - Weight decreased [Recovered/Resolved]
  - Cardiac disorder [Recovered/Resolved]

NARRATIVE: CASE EVENT DATE: 20231001
